FAERS Safety Report 5871968-1 (Version None)
Quarter: 2008Q3

REPORT INFORMATION
  Report Type: 
  Country: None (occurrence: None)
  Receive Date: 20080905
  Receipt Date: 20080902
  Transmission Date: 20090109
  Serious: Yes (Other)
  Sender: FDA-Public Use
  Company Number: AU-BRISTOL-MYERS SQUIBB COMPANY-14316277

PATIENT
  Age: 25 Year
  Sex: Male

DRUGS (4)
  1. ABATACEPT [Suspect]
     Indication: CROHN'S DISEASE
     Dosage: 31MAY-02AUG07,21AUG07-CONT,200ML,IV
     Route: 042
     Dates: start: 20070531
  2. PREDNISOLONE [Concomitant]
     Dates: start: 20080826
  3. AZATHIOPRINE [Concomitant]
     Dates: start: 20080617, end: 20080826
  4. NEXIUM [Concomitant]
     Dates: start: 20050623

REACTIONS (1)
  - HEPATITIS B [None]
